FAERS Safety Report 25808606 (Version 1)
Quarter: 2025Q3

REPORT INFORMATION
  Report Type: Spontaneous
  Country: US (occurrence: None)
  Receive Date: 20250915
  Receipt Date: 20250915
  Transmission Date: 20251020
  Serious: No
  Sender: FDA-CTU
  Company Number: None

PATIENT
  Age: 53 Year
  Sex: Female

DRUGS (1)
  1. ESTRADIOL [Suspect]
     Active Substance: ESTRADIOL
     Dosage: OTHER FREQUENCY : ONCE WEEKLY;?
     Route: 062
     Dates: start: 20250801

REACTIONS (1)
  - Application site pruritus [None]

NARRATIVE: CASE EVENT DATE: 20250804
